FAERS Safety Report 16069874 (Version 1)
Quarter: 2019Q1

REPORT INFORMATION
  Report Type: Report from Study
  Country: FR (occurrence: FR)
  Receive Date: 20190314
  Receipt Date: 20190314
  Transmission Date: 20190418
  Serious: Yes (Other)
  Sender: FDA-Public Use
  Company Number: FR-ROCHE-1390440

PATIENT
  Age: 56 Year
  Sex: Female

DRUGS (7)
  1. METHYLPREDNISOLONE. [Concomitant]
     Active Substance: METHYLPREDNISOLONE
     Indication: PREMEDICATION
     Route: 065
  2. RITUXIMAB. [Suspect]
     Active Substance: RITUXIMAB
     Indication: RHEUMATOID ARTHRITIS
     Dosage: 1G (D1)
     Route: 042
     Dates: start: 20081205, end: 201103
  3. RITUXIMAB. [Suspect]
     Active Substance: RITUXIMAB
     Dosage: 1G (D1)
     Route: 042
     Dates: start: 20091020
  4. CORTANCYL [Concomitant]
     Active Substance: PREDNISONE
     Route: 065
  5. RITUXIMAB. [Suspect]
     Active Substance: RITUXIMAB
     Dosage: 1G (D15)
     Route: 042
     Dates: start: 20091109, end: 201103
  6. RITUXIMAB. [Suspect]
     Active Substance: RITUXIMAB
     Dosage: 1G (D15)
     Route: 042
     Dates: start: 20081219
  7. PARACETAMOL [Concomitant]
     Active Substance: ACETAMINOPHEN
     Indication: PREMEDICATION

REACTIONS (20)
  - Angioedema [Recovered/Resolved]
  - Tooth abscess [Unknown]
  - Pain in extremity [Recovered/Resolved]
  - Beta globulin increased [Unknown]
  - Diarrhoea [Recovered/Resolved]
  - Diarrhoea [Recovered/Resolved]
  - Infusion related reaction [Unknown]
  - Nausea [Recovered/Resolved]
  - Dyslipidaemia [Not Recovered/Not Resolved]
  - Erectile dysfunction [Recovered/Resolved]
  - Pyrexia [Recovered/Resolved]
  - Liver function test abnormal [Unknown]
  - Arthralgia [Recovered/Resolved]
  - Dysphonia [Recovered/Resolved]
  - Laryngeal pain [Recovered/Resolved]
  - Lung infection [Recovered/Resolved]
  - Respiratory disorder [Recovered/Resolved]
  - Dysphagia [Unknown]
  - Abdominal pain [Recovered/Resolved]
  - Infusion related reaction [Recovered/Resolved]

NARRATIVE: CASE EVENT DATE: 20081219
